FAERS Safety Report 9704446 (Version 1)
Quarter: 2013Q4

REPORT INFORMATION
  Report Type: Spontaneous
  Country: US (occurrence: None)
  Receive Date: 20131121
  Receipt Date: 20131121
  Transmission Date: 20140711
  Serious: Yes (Hospitalization)
  Sender: FDA-Public Use
  Company Number: None

PATIENT
  Age: 59 Year
  Sex: Male
  Weight: 75.8 kg

DRUGS (1)
  1. PHENOBARBITAL [Suspect]
     Indication: CONVULSION
     Dosage: MG BID PO
     Route: 048
     Dates: start: 20131023, end: 20131030

REACTIONS (4)
  - Diarrhoea [None]
  - Lymphoma [None]
  - Convulsion [None]
  - Drug dose omission [None]
